FAERS Safety Report 7656483-7 (Version None)
Quarter: 2011Q3

REPORT INFORMATION
  Report Type: 
  Country: None (occurrence: None)
  Receive Date: 20110804
  Receipt Date: 20100730
  Transmission Date: 20111222
  Serious: No
  Sender: FDA-Public Use
  Company Number: US-BAUSCH-2010BL004200

PATIENT
  Age: 49 Year
  Sex: Female

DRUGS (2)
  1. OPCON-A [Suspect]
     Indication: OFF LABEL USE
     Route: 047
     Dates: start: 20100729, end: 20100729
  2. OPCON-A [Suspect]
     Indication: EYE IRRIGATION
     Route: 047
     Dates: start: 20100729, end: 20100729

REACTIONS (2)
  - MYDRIASIS [None]
  - INCORRECT DOSE ADMINISTERED [None]
